FAERS Safety Report 17009157 (Version 1)
Quarter: 2019Q4

REPORT INFORMATION
  Report Type: Spontaneous
  Country: US (occurrence: US)
  Receive Date: 20191108
  Receipt Date: 20191108
  Transmission Date: 20200122
  Serious: No
  Sender: FDA-Public Use
  Company Number: US-BAUSCH-BL-2019-060279

PATIENT

DRUGS (2)
  1. PLENVU [Suspect]
     Active Substance: ASCORBIC ACID\POLYETHYLENE GLYCOL 3350\POTASSIUM CHLORIDE\SODIUM ASCORBATE\SODIUM CHLORIDE\SODIUM SULFATE
     Indication: BOWEL PREPARATION
     Dosage: TAKEN FOR LESS THAN ONE MONTH
     Route: 065
  2. ASPARTAME [Suspect]
     Active Substance: ASPARTAME
     Indication: BOWEL PREPARATION
     Dosage: TAKEN FOR LESS THAN ONE MONTH
     Route: 065

REACTIONS (1)
  - Malaise [Unknown]
